FAERS Safety Report 4649830-1 (Version None)
Quarter: 2005Q2

REPORT INFORMATION
  Report Type: 
  Country: None (occurrence: None)
  Receive Date: 20050428
  Receipt Date: 20050419
  Transmission Date: 20051028
  Serious: Yes (Hospitalization, Other)
  Sender: FDA-Public Use
  Company Number: 2005-04-0698

PATIENT
  Age: 31 Year
  Sex: Female
  Weight: 46 kg

DRUGS (12)
  1. PEG-INTRON [Suspect]
     Indication: HEPATITIS C
     Dosage: SEE IMAGE
     Route: 058
     Dates: start: 20050225, end: 20050303
  2. PEG-INTRON [Suspect]
     Indication: HEPATITIS C
     Dosage: SEE IMAGE
     Route: 058
     Dates: start: 20050304, end: 20050401
  3. REBETOL [Suspect]
     Indication: HEPATITIS C
     Dosage: 400 MG ORAL
     Route: 048
     Dates: start: 20050225, end: 20050412
  4. PROMAC (POLAPREZINC) GRANULES [Concomitant]
  5. VOLTAREN [Concomitant]
  6. LENDORM [Concomitant]
  7. GASTROINTESTINAL DRUG (NOS) [Concomitant]
  8. URINORM [Concomitant]
  9. DEPAS [Concomitant]
  10. CYTOTEC [Concomitant]
  11. RABEPRAZOLE SODIUM [Concomitant]
  12. REBAMIPIDE [Concomitant]

REACTIONS (4)
  - ANOREXIA [None]
  - BLOOD CALCIUM DECREASED [None]
  - MYALGIA [None]
  - TETANY [None]
